FAERS Safety Report 20187270 (Version 1)
Quarter: 2021Q4

REPORT INFORMATION
  Report Type: Spontaneous
  Country: NL (occurrence: NL)
  Receive Date: 20211215
  Receipt Date: 20211215
  Transmission Date: 20220303
  Serious: Yes (Life-Threatening, Hospitalization, Other)
  Sender: FDA-Public Use
  Company Number: NL-MYLANLABS-2021M1092037

PATIENT
  Age: 45 Year
  Sex: Male

DRUGS (18)
  1. BACLOFEN [Suspect]
     Active Substance: BACLOFEN
     Indication: Drug withdrawal syndrome
     Dosage: 20 MILLIGRAM, TID (ADMINISTERED VIA NASOGASTRIC TUBE)
     Route: 065
  2. OLANZAPINE [Suspect]
     Active Substance: OLANZAPINE
     Indication: Drug withdrawal syndrome
     Dosage: UNK
     Route: 065
  3. SODIUM OXYBATE [Suspect]
     Active Substance: SODIUM OXYBATE
     Indication: Product used for unknown indication
     Dosage: DOSE- 10-15 ML; HAD USED 40 ML OF UNKNOWN CONCENTRATION EVERY HOUR 48H PRIOR ADMISSION (ABUSE)
     Route: 048
  4. SODIUM OXYBATE [Suspect]
     Active Substance: SODIUM OXYBATE
     Dosage: 6 GRAM, Q2H [(500 MG/ML (TREATMENT)]
     Route: 048
  5. SODIUM OXYBATE [Suspect]
     Active Substance: SODIUM OXYBATE
     Indication: Drug withdrawal syndrome
     Dosage: 10 GRAM, Q2H (ADMINISTERED VIA NASOGASTRIC TUBE )
     Dates: start: 201608
  6. SODIUM OXYBATE [Suspect]
     Active Substance: SODIUM OXYBATE
     Dosage: 20 GRAM, Q2H (ADMINISTERED VIA NASOGASTRIC TUBE )
     Route: 065
  7. CLONIDINE [Suspect]
     Active Substance: CLONIDINE
     Indication: Drug withdrawal syndrome
     Dosage: 1 MICROGRAM/KILOGRAM, QH
     Route: 042
  8. CLONIDINE [Suspect]
     Active Substance: CLONIDINE
     Indication: Drug withdrawal syndrome
  9. DIAZEPAM [Suspect]
     Active Substance: DIAZEPAM
     Indication: Product used for unknown indication
     Dosage: 30 MILLIGRAM, QD
     Route: 065
  10. DIAZEPAM [Suspect]
     Active Substance: DIAZEPAM
     Indication: Drug withdrawal syndrome
     Dosage: 300 MILLIGRAM
     Route: 065
  11. DIAZEPAM [Suspect]
     Active Substance: DIAZEPAM
     Indication: Drug abuse
     Dosage: 15 MILLIGRAM
     Route: 065
  12. DIAZEPAM [Suspect]
     Active Substance: DIAZEPAM
     Indication: Drug withdrawal syndrome
  13. MIDAZOLAM [Suspect]
     Active Substance: MIDAZOLAM
     Indication: Drug withdrawal syndrome
     Dosage: 30 MILLIGRAM, QH
     Route: 042
  14. MIDAZOLAM [Suspect]
     Active Substance: MIDAZOLAM
     Indication: Drug withdrawal syndrome
     Dosage: 10 MILLIGRAM, QH
     Route: 042
  15. PROPOFOL [Suspect]
     Active Substance: PROPOFOL
     Indication: Drug withdrawal syndrome
     Dosage: 300 MILLIGRAM, QH
     Route: 042
  16. PROPOFOL [Suspect]
     Active Substance: PROPOFOL
     Indication: Drug withdrawal syndrome
  17. THIAMINE [Concomitant]
     Active Substance: THIAMINE
     Indication: Prophylaxis
     Dosage: 250 MILLIGRAM
     Route: 042
  18. MAGNESIUM SULFATE [Concomitant]
     Active Substance: MAGNESIUM SULFATE
     Indication: Constipation prophylaxis
     Dosage: 15 GRAM
     Route: 065

REACTIONS (10)
  - Drug abuse [Not Recovered/Not Resolved]
  - Drug dependence [Recovered/Resolved]
  - Drug withdrawal syndrome [Recovered/Resolved]
  - Loss of consciousness [Recovered/Resolved]
  - Respiratory failure [Recovered/Resolved]
  - Autonomic nervous system imbalance [Recovered/Resolved]
  - Drug ineffective [Recovering/Resolving]
  - Akathisia [Recovered/Resolved]
  - Hypernatraemia [Unknown]
  - Off label use [Unknown]
